FAERS Safety Report 5430924-8 (Version None)
Quarter: 2007Q3

REPORT INFORMATION
  Report Type: 
  Country: None (occurrence: None)
  Receive Date: 20070830
  Receipt Date: 20070821
  Transmission Date: 20080115
  Serious: Yes (Death, Other)
  Sender: FDA-Public Use
  Company Number: US-PURDUE-USA_2003_0006178

PATIENT
  Age: 53 Year
  Sex: Male

DRUGS (19)
  1. OXYCONTIN [Suspect]
     Indication: PAIN
     Dosage: 20 MG, UNK
     Route: 065
  2. OXYCONTIN [Suspect]
     Dosage: 80 MG, BID
     Route: 065
  3. OXYCONTIN [Suspect]
     Dosage: 40 MG, UNK
     Route: 065
  4. OXYCONTIN [Suspect]
     Dosage: 80 MG, TID
     Route: 065
  5. OXYCONTIN [Suspect]
     Dosage: 160 MG, Q12H
     Route: 065
  6. OXYCONTIN [Suspect]
     Dosage: 160 MG, Q8H
     Route: 048
     Dates: end: 20020304
  7. OXYCONTIN [Suspect]
     Dosage: UNK, SEE TEXT
  8. OXYCONTIN [Suspect]
     Dosage: 10 MG, Q12H
     Route: 065
     Dates: start: 20000522
  9. BACLOFEN [Concomitant]
     Indication: DRUG USE FOR UNKNOWN INDICATION
     Dosage: 20 MG, TID
     Route: 065
  10. LORTAB [Concomitant]
     Indication: PAIN
     Dosage: 10 MG, Q8H
     Route: 048
  11. LORTAB [Concomitant]
     Dosage: 10 MG, BID
     Route: 048
  12. NEURONTIN [Concomitant]
     Indication: DRUG USE FOR UNKNOWN INDICATION
     Dosage: 600 MG, TID
     Route: 065
  13. NEURONTIN [Concomitant]
     Dosage: 600 MG, QID
     Route: 048
  14. VALIUM [Concomitant]
     Indication: DRUG USE FOR UNKNOWN INDICATION
  15. LOTREL [Concomitant]
     Indication: HYPERTENSION
     Dosage: UNK, UNK
     Route: 065
  16. LASIX [Concomitant]
     Indication: DRUG USE FOR UNKNOWN INDICATION
     Dosage: 20 MG, UNK
     Route: 065
  17. HYTRIN [Concomitant]
     Indication: DRUG USE FOR UNKNOWN INDICATION
     Dosage: UNK, NOCTE
     Route: 065
  18. ZANAFLEX [Concomitant]
     Indication: DRUG USE FOR UNKNOWN INDICATION
     Dosage: 2 MG, TID
     Route: 048
  19. ZANAFLEX [Concomitant]
     Dosage: 10 MG, QID
     Route: 048

REACTIONS (35)
  - ABDOMINAL PAIN [None]
  - ACTIVITIES OF DAILY LIVING IMPAIRED [None]
  - AGITATION [None]
  - ALOPECIA [None]
  - ANXIETY [None]
  - BURNING SENSATION [None]
  - CHILLS [None]
  - DEATH [None]
  - DEPRESSION [None]
  - DIARRHOEA [None]
  - DRUG DEPENDENCE [None]
  - DRUG WITHDRAWAL SYNDROME [None]
  - FALL [None]
  - GAIT DISTURBANCE [None]
  - HEADACHE [None]
  - HYPERHIDROSIS [None]
  - HYPOAESTHESIA [None]
  - INSOMNIA [None]
  - IRRITABILITY [None]
  - LOSS OF CONSCIOUSNESS [None]
  - MUSCLE SPASMS [None]
  - MYDRIASIS [None]
  - NEUROPATHY PERIPHERAL [None]
  - NIGHTMARE [None]
  - PAIN [None]
  - PAIN IN EXTREMITY [None]
  - POLYDIPSIA [None]
  - POLYURIA [None]
  - RHONCHI [None]
  - ROAD TRAFFIC ACCIDENT [None]
  - SKIN INFECTION [None]
  - SLEEP DISORDER [None]
  - SWELLING [None]
  - VICTIM OF CRIME [None]
  - VOMITING [None]
